FAERS Safety Report 4422155-5 (Version None)
Quarter: 2004Q3

REPORT INFORMATION
  Report Type: 
  Country: None (occurrence: None)
  Receive Date: 20040712
  Receipt Date: 20030908
  Transmission Date: 20050211
  Serious: Yes (Hospitalization)
  Sender: FDA-Public Use
  Company Number: TAP2003Q02105

PATIENT
  Age: 64 Year
  Sex: Male
  Weight: 97.0698 kg

DRUGS (3)
  1. PREVACID [Suspect]
     Indication: GASTROOESOPHAGEAL REFLUX DISEASE
     Dosage: UNK, ONCE; PER ORAL
     Route: 048
     Dates: start: 20030908, end: 20030908
  2. ACIPHEX [Suspect]
     Indication: GASTROOESOPHAGEAL REFLUX DISEASE
     Dosage: UNK, ONCE, PER ORAL
     Route: 048
     Dates: start: 20030908, end: 20030908
  3. ZYRTEC [Concomitant]

REACTIONS (4)
  - CORONARY ARTERY OCCLUSION [None]
  - HYPOACUSIS [None]
  - OROPHARYNGEAL SWELLING [None]
  - SWELLING FACE [None]
